FAERS Safety Report 8816480 (Version 2)
Quarter: 2013Q1

REPORT INFORMATION
  Report Type: Spontaneous
  Country: US (occurrence: None)
  Receive Date: 20120927
  Receipt Date: 20130131
  Transmission Date: 20140127
  Serious: Yes (Other)
  Sender: FDA-Public Use
  Company Number: 1-2012059

PATIENT
  Age: 52 Year
  Sex: Female

DRUGS (1)
  1. CHLORHEXIDINE GLUCONATE [Suspect]
     Indication: THERAPEUTIC SKIN CARE TOPICAL
     Dosage: (INTRAOCULAR)
     Route: 061
     Dates: start: 20120828, end: 20120926

REACTIONS (4)
  - Incorrect route of drug administration [None]
  - Eye irritation [None]
  - Corneal abrasion [None]
  - Chemical burns of eye [None]
